FAERS Safety Report 24822634 (Version 1)
Quarter: 2025Q1

REPORT INFORMATION
  Report Type: Spontaneous
  Country: US (occurrence: US)
  Receive Date: 20250109
  Receipt Date: 20250109
  Transmission Date: 20250409
  Serious: No
  Sender: SANOFI AVENTIS
  Company Number: US-SA-2025SA006114

PATIENT
  Sex: Female

DRUGS (28)
  1. DUPIXENT [Suspect]
     Active Substance: DUPILUMAB
     Indication: Asthma
     Dosage: 300 MG QOW
     Route: 058
  2. SERTRALINE HYDROCHLORIDE [Concomitant]
     Active Substance: SERTRALINE HYDROCHLORIDE
  3. TRELEGY ELLIPTA [Concomitant]
     Active Substance: FLUTICASONE FUROATE\UMECLIDINIUM BROMIDE\VILANTEROL TRIFENATATE
  4. AIMOVIG [Concomitant]
     Active Substance: ERENUMAB-AOOE
  5. ALBUTEROL SULFATE [Concomitant]
     Active Substance: ALBUTEROL SULFATE
  6. ANASTROZOLE [Concomitant]
     Active Substance: ANASTROZOLE
  7. ARIPIPRAZOLE [Concomitant]
     Active Substance: ARIPIPRAZOLE
  8. ATORVASTATIN [Concomitant]
     Active Substance: ATORVASTATIN
  9. AUSTEDO [Concomitant]
     Active Substance: DEUTETRABENAZINE
  10. CALCIUM [Concomitant]
     Active Substance: CALCIUM
  11. DILTIAZEM HYDROCHLORIDE [Concomitant]
     Active Substance: DILTIAZEM HYDROCHLORIDE
  12. FUROSEMIDE [Concomitant]
     Active Substance: FUROSEMIDE
  13. GABAPENTIN [Concomitant]
     Active Substance: GABAPENTIN
  14. IPRATROPIUM [Concomitant]
     Active Substance: IPRATROPIUM
  15. LIOTHYRONINE [Concomitant]
     Active Substance: LIOTHYRONINE
  16. LORATADINE [Concomitant]
     Active Substance: LORATADINE
  17. METOPROLOL SUCCINATE [Concomitant]
     Active Substance: METOPROLOL SUCCINATE
  18. MIRTAZAPINE [Concomitant]
     Active Substance: MIRTAZAPINE
  19. MONTELUKAST [Concomitant]
     Active Substance: MONTELUKAST
  20. OMEPRAZOLE [Concomitant]
     Active Substance: OMEPRAZOLE
  21. NITROGLYCERIN [Concomitant]
     Active Substance: NITROGLYCERIN
  22. ONDANSETRON [Concomitant]
     Active Substance: ONDANSETRON
  23. OXYCODONE HYDROCHLORIDE [Concomitant]
     Active Substance: OXYCODONE HYDROCHLORIDE
  24. OZEMPIC [Concomitant]
     Active Substance: SEMAGLUTIDE
  25. PREDNISONE [Concomitant]
     Active Substance: PREDNISONE
  26. RANOLAZINE [Concomitant]
     Active Substance: RANOLAZINE
  27. PRISTIQ EXTENDED-RELEASE [Concomitant]
     Active Substance: DESVENLAFAXINE SUCCINATE
  28. PRAMIPEXOLE [Concomitant]
     Active Substance: PRAMIPEXOLE

REACTIONS (3)
  - Cough [Unknown]
  - Wheezing [Unknown]
  - Dyspnoea [Unknown]
